FAERS Safety Report 6586026-0 (Version None)
Quarter: 2010Q1

REPORT INFORMATION
  Report Type: 
  Country: None (occurrence: None)
  Receive Date: 20100217
  Receipt Date: 20090108
  Transmission Date: 20100710
  Serious: No
  Sender: FDA-Public Use
  Company Number: US-ALLERGAN-0900684US

PATIENT
  Sex: Female

DRUGS (4)
  1. BOTOX [Suspect]
     Indication: BLEPHAROSPASM
     Dosage: UNK, SINGLE
     Route: 030
     Dates: start: 20081101, end: 20081101
  2. BOTOX [Suspect]
     Indication: SPASMODIC DYSPHONIA
  3. CIPRO [Suspect]
     Indication: CYSTITIS
  4. REFRESH P.M. [Concomitant]
     Indication: DRUG USE FOR UNKNOWN INDICATION
     Dosage: UNK, QHS
     Route: 047

REACTIONS (2)
  - DRUG INTERACTION [None]
  - SPASMODIC DYSPHONIA [None]
